FAERS Safety Report 17071052 (Version 2)
Quarter: 2020Q2

REPORT INFORMATION
  Report Type: Report from Study
  Country: US (occurrence: US)
  Receive Date: 20191125
  Receipt Date: 20200409
  Transmission Date: 20200713
  Serious: Yes (Hospitalization, Other)
  Sender: FDA-Public Use
  Company Number: US-BAYER-2019-207982

PATIENT
  Age: 75 Year
  Sex: Female

DRUGS (6)
  1. OXYGEN. [Concomitant]
     Active Substance: OXYGEN
     Dosage: 6 L
     Route: 055
  2. ADEMPAS [Suspect]
     Active Substance: RIOCIGUAT
     Indication: PULMONARY ARTERIAL HYPERTENSION
     Dosage: 1.5 MG, TID
     Route: 048
  3. ADEMPAS [Suspect]
     Active Substance: RIOCIGUAT
     Indication: PULMONARY ARTERIAL HYPERTENSION
     Dosage: 1.5 MG, TID
     Route: 048
  4. WARFARIN [Concomitant]
     Active Substance: WARFARIN
     Dosage: UNK
  5. ADEMPAS [Suspect]
     Active Substance: RIOCIGUAT
     Indication: PULMONARY ARTERIAL HYPERTENSION
     Dosage: UNK
     Dates: start: 20190311
  6. OPSUMIT [Concomitant]
     Active Substance: MACITENTAN
     Dosage: UNK
     Dates: start: 20191110

REACTIONS (11)
  - Fluid overload [Recovered/Resolved]
  - Fluid retention [Recovered/Resolved]
  - Kidney infection [None]
  - Oedema [None]
  - Swelling [None]
  - Peripheral swelling [Recovered/Resolved]
  - Cardiac failure congestive [Unknown]
  - Acute kidney injury [Unknown]
  - Kidney infection [Recovered/Resolved]
  - Pulmonary oedema [Recovered/Resolved]
  - Fluid overload [None]

NARRATIVE: CASE EVENT DATE: 2019
